FAERS Safety Report 4679246-3 (Version None)
Quarter: 2005Q2

REPORT INFORMATION
  Report Type: 
  Country: None (occurrence: None)
  Receive Date: 20050531
  Receipt Date: 20050531
  Transmission Date: 20051028
  Serious: No
  Sender: FDA-Public Use
  Company Number: None

PATIENT
  Sex: Female
  Weight: 63.64 kg

DRUGS (5)
  1. CYCLOPHOSPHAMIDE [Suspect]
     Indication: BREAST CANCER
     Dates: start: 20050509
  2. DOXORUBICIN HYDROCHLORIDE [Suspect]
  3. TAXOL [Suspect]
  4. NEULASTA [Suspect]
  5. PREDNISONE [Suspect]

REACTIONS (8)
  - ACUTE RESPIRATORY DISTRESS SYNDROME [None]
  - BLOOD ALKALINE PHOSPHATASE INCREASED [None]
  - BLOOD LACTATE DEHYDROGENASE INCREASED [None]
  - DYSPNOEA [None]
  - HERPES ZOSTER [None]
  - IMPLANT SITE INFECTION [None]
  - SEROMA [None]
  - WHITE BLOOD CELL COUNT INCREASED [None]
